FAERS Safety Report 10654636 (Version 1)
Quarter: 2014Q4

REPORT INFORMATION
  Report Type: Spontaneous
  Country: US (occurrence: US)
  Receive Date: 20141216
  Receipt Date: 20141216
  Transmission Date: 20150529
  Serious: No
  Sender: FDA-Public Use
  Company Number: US-TEVA-526459USA

PATIENT
  Age: 59 Year
  Sex: Female

DRUGS (1)
  1. COPAXONE [Suspect]
     Active Substance: GLATIRAMER ACETATE
     Indication: MULTIPLE SCLEROSIS
     Route: 058
     Dates: start: 20010926

REACTIONS (9)
  - Nausea [Unknown]
  - Flushing [Unknown]
  - Swelling face [Recovered/Resolved]
  - Chills [Unknown]
  - Lip swelling [Recovered/Resolved]
  - Ear swelling [Recovered/Resolved]
  - Urticaria [Unknown]
  - Back pain [Unknown]
  - Dyspnoea [Unknown]

NARRATIVE: CASE EVENT DATE: 20140818
